FAERS Safety Report 7625549-X (Version None)
Quarter: 2011Q3

REPORT INFORMATION
  Report Type: 
  Country: None (occurrence: None)
  Receive Date: 20110721
  Receipt Date: 20110713
  Transmission Date: 20111222
  Serious: Yes (Other)
  Sender: FDA-Public Use
  Company Number: US-ASTELLAS-2011US003870

PATIENT
  Age: 29 Year
  Sex: Female

DRUGS (3)
  1. PROGRAF [Suspect]
     Indication: RENAL TRANSPLANT
     Dosage: UNK
     Route: 065
  2. PREDNISONE [Suspect]
     Indication: RENAL TRANSPLANT
     Dosage: UNK
     Route: 065
  3. MYCOPHENOLATE MOFETIL [Suspect]
     Indication: RENAL TRANSPLANT
     Dosage: UNK
     Route: 065

REACTIONS (2)
  - APALLIC SYNDROME [None]
  - WEST NILE VIRAL INFECTION [None]
